FAERS Safety Report 9910167 (Version 2)
Quarter: 2014Q1

REPORT INFORMATION
  Report Type: Report from Study
  Country: MW (occurrence: MW)
  Receive Date: 20140219
  Receipt Date: 20140219
  Transmission Date: 20141002
  Serious: Yes (Death, Hospitalization)
  Sender: FDA-Public Use
  Company Number: MW-BRISTOL-MYERS SQUIBB COMPANY-19933522

PATIENT
  Age: 33 Year
  Sex: Male

DRUGS (11)
  1. EFAVIRENZ TABS [Suspect]
     Indication: HIV INFECTION
     Route: 048
     Dates: start: 20131111, end: 20140206
  2. RALTEGRAVIR [Suspect]
     Indication: HIV INFECTION
     Dosage: RALTEGRAVIR POTASSIUM TABS
     Route: 048
     Dates: start: 20131111, end: 20140203
  3. TENOFOVIR [Suspect]
     Indication: HIV INFECTION
     Dosage: CAPSULE
     Route: 048
     Dates: start: 20131111
  4. EMTRICITABINE [Suspect]
     Indication: HIV INFECTION
     Dosage: TAB
     Route: 048
     Dates: start: 20131111, end: 20140206
  5. FLUCONAZOLE [Concomitant]
     Dates: start: 20131111, end: 20140206
  6. SULFAMETHOXAZOLE + TRIMETHOPRIM [Concomitant]
     Dates: start: 20131017, end: 20140206
  7. ISONIAZID [Concomitant]
     Dosage: 13DEC2013-06FEB2014
     Dates: start: 20131111, end: 20140206
  8. PYRIDOXINE [Concomitant]
     Dates: start: 20131111, end: 20140206
  9. RIFAMPICIN [Concomitant]
     Dates: start: 20131213
  10. ETHAMBUTOL [Concomitant]
     Dates: start: 20131213
  11. PYRAZINAMIDE [Concomitant]
     Dates: start: 20131213

REACTIONS (2)
  - Pneumonia [Fatal]
  - Disseminated tuberculosis [Fatal]
